FAERS Safety Report 7609490-4 (Version None)
Quarter: 2011Q3

REPORT INFORMATION
  Report Type: 
  Country: None (occurrence: None)
  Receive Date: 20110714
  Receipt Date: 20110707
  Transmission Date: 20111222
  Serious: Yes (Hospitalization)
  Sender: FDA-Public Use
  Company Number: PHHY2011IT60238

PATIENT
  Sex: Female

DRUGS (1)
  1. CLOZAPINE [Suspect]
     Dosage: 1 POSOLOGIC UNIT
     Route: 048
     Dates: start: 20110623, end: 20110623

REACTIONS (3)
  - SOPOR [None]
  - ALTERED STATE OF CONSCIOUSNESS [None]
  - DRUG ADMINISTRATION ERROR [None]
